FAERS Safety Report 7579377-4 (Version None)
Quarter: 2011Q2

REPORT INFORMATION
  Report Type: 
  Country: None (occurrence: None)
  Receive Date: 20110629
  Receipt Date: 20110621
  Transmission Date: 20111010
  Serious: Yes (Death, Hospitalization)
  Sender: FDA-Public Use
  Company Number: US-BIOGENIDEC-2011BI010957

PATIENT
  Age: 54 Year
  Sex: Female

DRUGS (6)
  1. SERTRALINE HYDROCHLORIDE [Concomitant]
     Route: 048
  2. TYLENOL-500 [Concomitant]
     Indication: BODY TEMPERATURE
  3. ENALAPRIL MALEATE [Concomitant]
     Indication: HYPERTENSIVE HEART DISEASE
     Route: 048
  4. BACLOFEN [Concomitant]
     Route: 048
  5. TYSABRI [Suspect]
     Indication: MULTIPLE SCLEROSIS
     Route: 042
     Dates: start: 20090612, end: 20110211
  6. HYDROCHLOROTHIAZIDE [Concomitant]
     Indication: HYPERTENSIVE HEART DISEASE
     Route: 048

REACTIONS (5)
  - MULTIPLE SCLEROSIS [None]
  - DYSPHAGIA [None]
  - PYREXIA [None]
  - DECUBITUS ULCER [None]
  - STARVATION [None]
